FAERS Safety Report 17942342 (Version 1)
Quarter: 2020Q2

REPORT INFORMATION
  Report Type: Spontaneous
  Country: US (occurrence: US)
  Receive Date: 20200625
  Receipt Date: 20200625
  Transmission Date: 20200714
  Serious: Yes (Disabling)
  Sender: FDA-Public Use
  Company Number: None

PATIENT
  Age: 72 Year
  Sex: Female
  Weight: 85.5 kg

DRUGS (6)
  1. CALCIUM WITH VITAMIN D [Concomitant]
     Active Substance: CALCIUM\VITAMIN D
  2. PROLIA [Suspect]
     Active Substance: DENOSUMAB
     Indication: OSTEOPENIA
     Dosage: ?          OTHER FREQUENCY:EVERY 6 MONTHS;?
     Route: 058
     Dates: start: 20160824, end: 20200323
  3. LOSARTIN [Concomitant]
     Active Substance: LOSARTAN
  4. PROLIA [Concomitant]
     Active Substance: DENOSUMAB
  5. METROPRODOL [Concomitant]
  6. AMLODOPINE [Concomitant]
     Active Substance: AMLODIPINE BESYLATE

REACTIONS (7)
  - Decreased appetite [None]
  - Walking aid user [None]
  - Loss of personal independence in daily activities [None]
  - Pain in extremity [None]
  - Arthralgia [None]
  - Gait inability [None]
  - Alopecia [None]

NARRATIVE: CASE EVENT DATE: 20200506
